FAERS Safety Report 23347110 (Version 1)
Quarter: 2023Q4

REPORT INFORMATION
  Report Type: Spontaneous
  Country: CN (occurrence: CN)
  Receive Date: 20231228
  Receipt Date: 20231228
  Transmission Date: 20240110
  Serious: Yes (Other)
  Sender: FDA-Public Use
  Company Number: CN-009507513-2312CHN009618

PATIENT
  Age: 40 Year
  Sex: Female

DRUGS (3)
  1. KEYTRUDA [Suspect]
     Active Substance: PEMBROLIZUMAB
     Indication: Neoplasm
     Dosage: 200 MG, ONCE
     Route: 041
     Dates: start: 20231115, end: 20231115
  2. CISPLATIN [Concomitant]
     Active Substance: CISPLATIN
     Indication: Neoplasm
     Dosage: 80 MG, ONCE
     Route: 041
     Dates: start: 20231115, end: 20231115
  3. CETUXIMAB [Concomitant]
     Active Substance: CETUXIMAB
     Indication: Neoplasm
     Dosage: 70 MG, ONCE
     Route: 041
     Dates: start: 20231115, end: 20231115

REACTIONS (3)
  - Pneumonia necrotising [Recovering/Resolving]
  - Asthenia [Recovering/Resolving]
  - Product use issue [Unknown]

NARRATIVE: CASE EVENT DATE: 20231115
